FAERS Safety Report 25039451 (Version 1)
Quarter: 2025Q1

REPORT INFORMATION
  Report Type: Spontaneous
  Country: US (occurrence: US)
  Receive Date: 20250305
  Receipt Date: 20250305
  Transmission Date: 20250409
  Serious: No
  Sender: AMGEN
  Company Number: US-AMGEN-USASP2025039255

PATIENT
  Age: 73 Year
  Sex: Male

DRUGS (1)
  1. REPATHA [Suspect]
     Active Substance: EVOLOCUMAB
     Indication: Product used for unknown indication
     Route: 065
     Dates: start: 202502, end: 202502

REACTIONS (7)
  - Presyncope [Unknown]
  - Lacrimation increased [Unknown]
  - Paraesthesia [Recovered/Resolved]
  - Cold sweat [Unknown]
  - Nausea [Recovered/Resolved]
  - Influenza like illness [Not Recovered/Not Resolved]
  - Rash [Recovering/Resolving]

NARRATIVE: CASE EVENT DATE: 20250201
